FAERS Safety Report 11715176 (Version 2)
Quarter: 2016Q1

REPORT INFORMATION
  Report Type: Report from Study
  Country: FR (occurrence: FR)
  Receive Date: 20151109
  Receipt Date: 20160107
  Transmission Date: 20160525
  Serious: Yes (Death)
  Sender: FDA-Public Use
  Company Number: US-ASTRAZENECA-2015SF08186

PATIENT
  Age: 124 Day
  Sex: Female
  Weight: 3.4 kg

DRUGS (2)
  1. SYNAGIS [Suspect]
     Active Substance: PALIVIZUMAB
     Indication: ANTIVIRAL PROPHYLAXIS
     Route: 030
     Dates: start: 20151026, end: 20151026
  2. SYNAGIS [Suspect]
     Active Substance: PALIVIZUMAB
     Indication: ANTIVIRAL PROPHYLAXIS
     Route: 030
     Dates: start: 20151006, end: 20151006

REACTIONS (2)
  - Pulmonary haemorrhage [Fatal]
  - Bronchiolitis [Fatal]

NARRATIVE: CASE EVENT DATE: 20151103
